FAERS Safety Report 14920960 (Version 2)
Quarter: 2018Q3

REPORT INFORMATION
  Report Type: Report from Study
  Country: US (occurrence: US)
  Receive Date: 20180521
  Receipt Date: 20180827
  Transmission Date: 20181010
  Serious: Yes (Life-Threatening, Hospitalization)
  Sender: FDA-Public Use
  Company Number: US-ACTELION-A-US2017-159799

PATIENT
  Age: 56 Year
  Sex: Female

DRUGS (2)
  1. OPSUMIT [Suspect]
     Active Substance: MACITENTAN
     Indication: PULMONARY ARTERIAL HYPERTENSION
     Dosage: 10 MG, QD
     Route: 048
     Dates: start: 20161229
  2. OPSUMIT [Suspect]
     Active Substance: MACITENTAN
     Dosage: UNK
     Route: 048
     Dates: start: 20161201

REACTIONS (13)
  - Hepatomegaly [Unknown]
  - Oedema peripheral [Recovered/Resolved]
  - Sinus congestion [Unknown]
  - Dizziness [Unknown]
  - Urine output decreased [Unknown]
  - Upper respiratory tract congestion [Unknown]
  - Weight increased [Recovered/Resolved]
  - Nasal congestion [Recovered/Resolved]
  - Nausea [Unknown]
  - Bronchitis [Recovered/Resolved]
  - Pulmonary congestion [Recovered/Resolved]
  - Dyspnoea [Unknown]
  - Cough [Recovered/Resolved]

NARRATIVE: CASE EVENT DATE: 20170108
